FAERS Safety Report 24647861 (Version 1)
Quarter: 2024Q4

REPORT INFORMATION
  Report Type: Report from Study
  Country: US (occurrence: US)
  Receive Date: 20241121
  Receipt Date: 20241121
  Transmission Date: 20250115
  Serious: Yes (Hospitalization, Other)
  Sender: BAYER HEALTHCARE PHARMACEUTICALS INC.
  Company Number: US-BAYER-2024A160989

PATIENT
  Age: 74 Year
  Sex: Male

DRUGS (27)
  1. NUBEQA [Suspect]
     Active Substance: DAROLUTAMIDE
     Indication: Follicular lymphoma
     Dosage: 600 MG, BID
     Route: 048
     Dates: end: 202410
  2. RITUXAN [Suspect]
     Active Substance: RITUXIMAB
     Dosage: UNK
  3. ELIQUIS [Concomitant]
     Active Substance: APIXABAN
     Dosage: 2.5MG
  4. LYNPARZA [Concomitant]
     Active Substance: OLAPARIB
     Dosage: 150MG
  5. METOPROLOL SUCCINATE [Concomitant]
     Active Substance: METOPROLOL SUCCINATE
     Dosage: 2(50MG)
  6. ONDANSETRON [Concomitant]
     Active Substance: ONDANSETRON
     Dosage: 8MG
  7. CLOPIDOGREL BISULFATE [Concomitant]
     Active Substance: CLOPIDOGREL BISULFATE
     Dosage: 75MG
  8. GABAPENTIN [Concomitant]
     Active Substance: GABAPENTIN
     Dosage: 100MG
  9. LIDOCAINE [Concomitant]
     Active Substance: LIDOCAINE
     Indication: Pain in extremity
     Dosage: 5%
  10. PREDNISONE [Concomitant]
     Active Substance: PREDNISONE
     Dosage: 5MG
  11. AMITRIPTYLINE HYDROCHLORIDE [Concomitant]
     Active Substance: AMITRIPTYLINE HYDROCHLORIDE
     Dosage: 50MG
  12. ATORVASTATIN [Concomitant]
     Active Substance: ATORVASTATIN
     Dosage: 20MG
  13. ATORVASTATIN [Concomitant]
     Active Substance: ATORVASTATIN
     Dosage: UNK
  14. COENZYME Q10 [Concomitant]
     Active Substance: DIETARY SUPPLEMENT\UBIDECARENONE
     Dosage: 100MG
  15. DILTIAZEM HYDROCHLORIDE [Concomitant]
     Active Substance: DILTIAZEM HYDROCHLORIDE
     Dosage: 2 (180MG)
  16. HERBALS [Concomitant]
     Active Substance: HERBALS
     Dosage: 500MG
  17. HYDROCODONE [Concomitant]
     Active Substance: HYDROCODONE
     Dosage: 10-325MG
  18. LUPRON DEPOT [Concomitant]
     Active Substance: LEUPROLIDE ACETATE
     Dosage: 7.5MG
  19. METAMUCIL [Concomitant]
     Active Substance: PLANTAGO SEED
     Dosage: UNK
  20. METFORMIN [Concomitant]
     Active Substance: METFORMIN HYDROCHLORIDE
     Dosage: 500MG
  21. METHOCARBAMOL [Concomitant]
     Active Substance: METHOCARBAMOL
     Dosage: 750MG
  22. MODAFINIL [Concomitant]
     Active Substance: MODAFINIL
     Dosage: 200MG
  23. Nervive nerve relief [Concomitant]
     Dosage: 4-1%,
  24. POTASSIUM [Concomitant]
     Active Substance: POTASSIUM
     Dosage: 20MEQ
  25. HERBALS\TURMERIC [Concomitant]
     Active Substance: HERBALS\TURMERIC
     Dosage: 500MG
  26. VITAMIN D NOS [Concomitant]
     Active Substance: CHOLECALCIFEROL\ERGOCALCIFEROL
     Dosage: 25 MCG(1000
  27. FUROSEMIDE [Concomitant]
     Active Substance: FUROSEMIDE
     Dosage: 40MG

REACTIONS (24)
  - Dyspnoea [None]
  - Dysstasia [None]
  - Blindness [Recovered/Resolved]
  - Visual impairment [Recovered/Resolved]
  - Neuropathy peripheral [None]
  - Prostatic specific antigen increased [None]
  - Arterial stenosis [None]
  - Deafness [Recovered/Resolved]
  - Coronary artery disease [Recovered/Resolved]
  - Platelet disorder [None]
  - Feeling abnormal [Recovered/Resolved]
  - Bone pain [None]
  - Gait disturbance [None]
  - Vertigo [None]
  - Glucose tolerance impaired [None]
  - Abdominal distension [None]
  - Flatulence [None]
  - Dry mouth [None]
  - Alopecia [Recovering/Resolving]
  - Drug hypersensitivity [None]
  - Herpes zoster [Recovered/Resolved]
  - Arthralgia [None]
  - Pain in extremity [None]
  - Adverse event [Recovered/Resolved]

NARRATIVE: CASE EVENT DATE: 20241001
